FAERS Safety Report 6303015-1 (Version None)
Quarter: 2009Q3

REPORT INFORMATION
  Report Type: 
  Country: None (occurrence: None)
  Receive Date: 20090810
  Receipt Date: 20090730
  Transmission Date: 20100115
  Serious: Yes (Other)
  Sender: FDA-Public Use
  Company Number: US-BAYER-200928736NA

PATIENT
  Sex: Female

DRUGS (1)
  1. MAGNEVIST [Suspect]
     Indication: ANGIOGRAM
     Dosage: TOTAL DAILY DOSE: 20 ML  UNIT DOSE: 20 ML
     Route: 042
     Dates: start: 20090703, end: 20090703

REACTIONS (5)
  - AURICULAR SWELLING [None]
  - DYSPNOEA [None]
  - HYPERHIDROSIS [None]
  - NAUSEA [None]
  - PRURITUS [None]
